FAERS Safety Report 9871231 (Version 2)
Quarter: 2014Q2

REPORT INFORMATION
  Report Type: Spontaneous
  Country: US (occurrence: US)
  Receive Date: 20140205
  Receipt Date: 20140421
  Transmission Date: 20141212
  Serious: Yes (Hospitalization)
  Sender: FDA-Public Use
  Company Number: US-GLAXOSMITHKLINE-A1058507A

PATIENT
  Age: 55 Year
  Sex: Female

DRUGS (11)
  1. FLOVENT [Suspect]
     Indication: CHRONIC OBSTRUCTIVE PULMONARY DISEASE
     Dosage: 2PUFF TWICE PER DAY
     Route: 055
  2. VENTOLIN [Suspect]
     Indication: CHRONIC OBSTRUCTIVE PULMONARY DISEASE
     Route: 055
  3. VERAMYST [Suspect]
     Indication: PRODUCT USED FOR UNKNOWN INDICATION
     Dosage: 1SPR PER DAY
     Route: 045
  4. EPIPEN [Concomitant]
  5. LISINOPRIL [Concomitant]
  6. DULOXETINE [Concomitant]
  7. RISPERDAL [Concomitant]
  8. NYSTATIN [Concomitant]
  9. BUSPIRONE [Concomitant]
  10. TRIAMCINOLONE [Concomitant]
  11. BENTYL [Concomitant]

REACTIONS (4)
  - Mental disorder [Unknown]
  - Abnormal behaviour [Unknown]
  - Physical assault [Unknown]
  - Off label use [Unknown]
